FAERS Safety Report 19929349 (Version 4)
Quarter: 2022Q1

REPORT INFORMATION
  Report Type: Report from Study
  Country: CR (occurrence: CR)
  Receive Date: 20211007
  Receipt Date: 20220104
  Transmission Date: 20220423
  Serious: Yes (Hospitalization, Other)
  Sender: FDA-Public Use
  Company Number: CR-NOVARTISPH-NVSC2021CR223904

PATIENT
  Sex: Female

DRUGS (2)
  1. KISQALI [Suspect]
     Active Substance: RIBOCICLIB
     Indication: Breast cancer
     Dosage: 600 MG, QD
     Route: 048
     Dates: start: 20201014
  2. ANASTROZOLE [Suspect]
     Active Substance: ANASTROZOLE
     Indication: Product used for unknown indication
     Dosage: EVERY DAY
     Route: 065

REACTIONS (14)
  - Hip fracture [Unknown]
  - Fall [Unknown]
  - Cough [Unknown]
  - Dyspnoea [Unknown]
  - Neoplasm [Unknown]
  - Metastases to thorax [Unknown]
  - Metastases to bone [Unknown]
  - Pain [Unknown]
  - Osteoporosis [Unknown]
  - Irritability [Unknown]
  - Chest pain [Unknown]
  - Abdominal pain upper [Unknown]
  - Nasopharyngitis [Unknown]
  - Nausea [Unknown]
